FAERS Safety Report 5065690-1 (Version None)
Quarter: 2006Q3

REPORT INFORMATION
  Report Type: 
  Country: None (occurrence: None)
  Receive Date: 20060731
  Receipt Date: 20060727
  Transmission Date: 20061208
  Serious: Yes (Other)
  Sender: FDA-Public Use
  Company Number: US-JNJFOC-20060501395

PATIENT
  Sex: Female

DRUGS (6)
  1. TYLENOL (CAPLET) [Suspect]
     Route: 048
  2. TYLENOL (CAPLET) [Suspect]
     Indication: ARTHRITIS
     Route: 048
  3. OCUVITE [Concomitant]
  4. BETOPTIC [Concomitant]
  5. HYPERTENSION MEDICATION [Concomitant]
  6. CALCIUM GLUCONATE [Concomitant]

REACTIONS (1)
  - MACULAR DEGENERATION [None]
